FAERS Safety Report 9565954 (Version 2)
Quarter: 2013Q3

REPORT INFORMATION
  Report Type: Spontaneous
  Country: GB (occurrence: GB)
  Receive Date: 20130930
  Receipt Date: 20130930
  Transmission Date: 20140515
  Serious: Yes (Other)
  Sender: FDA-Public Use
  Company Number: GB-TEVA-372177ISR

PATIENT
  Age: 78 Year
  Sex: Female
  Weight: 55 kg

DRUGS (6)
  1. WARFARIN [Suspect]
     Indication: ATRIAL FIBRILLATION
  2. INFLUENZA VIRUS [Interacting]
     Indication: ANTIVIRAL PROPHYLAXIS
     Dosage: SINGLE INTRAMUSCULAR INJECTION.
     Route: 030
  3. RAMIPRIL [Concomitant]
  4. SOLIFENACIN SUCCINATE [Concomitant]
  5. SIMVASTATIN [Concomitant]
  6. METFORMIN [Concomitant]

REACTIONS (3)
  - International normalised ratio increased [Recovering/Resolving]
  - Drug interaction [Unknown]
  - Medication error [Unknown]
